FAERS Safety Report 18400722 (Version 1)
Quarter: 2020Q4

REPORT INFORMATION
  Report Type: Other
  Country: CA (occurrence: CA)
  Receive Date: 20201019
  Receipt Date: 20201019
  Transmission Date: 20210114
  Serious: Yes (Other)
  Sender: FDA-Public Use
  Company Number: CA-CELLTRION INC.-2020CA028859

PATIENT

DRUGS (11)
  1. DIPHENHYDRAMINE HYDROCHLORIDE. [Concomitant]
     Active Substance: DIPHENHYDRAMINE HYDROCHLORIDE
     Indication: PREMEDICATION
     Dosage: 50.0 MILLIGRAM
     Route: 048
  2. LASIX [Concomitant]
     Active Substance: FUROSEMIDE
  3. RABEPRAZOLE [Concomitant]
     Active Substance: RABEPRAZOLE
  4. ACETAMINOPHEN. [Concomitant]
     Active Substance: ACETAMINOPHEN
     Indication: PREMEDICATION
     Dosage: 325.0 MILLIGRAM
     Route: 048
  5. AMLODIPINE [Concomitant]
     Active Substance: AMLODIPINE BESYLATE
  6. BISOPROLOL [Concomitant]
     Active Substance: BISOPROLOL
  7. WARFARIN [Concomitant]
     Active Substance: WARFARIN
  8. RITUXIMAB (UNKNOWN) [Suspect]
     Active Substance: RITUXIMAB
     Dosage: UNK
     Route: 042
  9. RITUXIMAB (UNKNOWN) [Suspect]
     Active Substance: RITUXIMAB
     Indication: ANTIPHOSPHOLIPID SYNDROME
     Dosage: 500.0 MILLIGRAM, 1 EVERY 6 MONTHS
     Route: 042
  10. DAPSONE. [Concomitant]
     Active Substance: DAPSONE
  11. PREDNISONE. [Concomitant]
     Active Substance: PREDNISONE

REACTIONS (12)
  - Blood pressure fluctuation [Not Recovered/Not Resolved]
  - Oxygen saturation decreased [Not Recovered/Not Resolved]
  - Weight increased [Not Recovered/Not Resolved]
  - Off label use [Not Recovered/Not Resolved]
  - Intentional product use issue [Not Recovered/Not Resolved]
  - Infusion related reaction [Not Recovered/Not Resolved]
  - Weight abnormal [Not Recovered/Not Resolved]
  - Blood pressure increased [Not Recovered/Not Resolved]
  - Heart rate decreased [Not Recovered/Not Resolved]
  - Blood pressure systolic increased [Not Recovered/Not Resolved]
  - Blood pressure systolic abnormal [Not Recovered/Not Resolved]
  - Cataract [Not Recovered/Not Resolved]
